FAERS Safety Report 10031311 (Version 14)
Quarter: 2016Q1

REPORT INFORMATION
  Report Type: Report from Study
  Country: TR (occurrence: TR)
  Receive Date: 20140324
  Receipt Date: 20160106
  Transmission Date: 20160525
  Serious: Yes (Death, Hospitalization)
  Sender: FDA-Public Use
  Company Number: TR-ROCHE-1363131

PATIENT
  Age: 80 Year
  Sex: Male
  Weight: 74 kg

DRUGS (15)
  1. BENDAMUSTINE [Suspect]
     Active Substance: BENDAMUSTINE
     Dosage: 05/MAR/2014: C1D2: 90 MG/M2 DOSE: 163 MG, ONCE A DAY. ON 16/MAR/2014, THERAPY PERMANENTLY DISCONTINU
     Route: 042
     Dates: start: 20140305, end: 20140305
  2. UROGRAFIN [Concomitant]
     Active Substance: DIATRIZOATE MEGLUMINE\DIATRIZOATE SODIUM
     Dosage: 76% SUPPLEMENT, SINGLE DOSE
     Route: 048
     Dates: start: 20140205, end: 20140205
  3. GRANISETRON HYDROCHLORIDE. [Concomitant]
     Active Substance: GRANISETRON HYDROCHLORIDE
     Dosage: SINGLE DOSE
     Route: 048
     Dates: start: 20140309, end: 20140309
  4. DEKORT [Concomitant]
     Active Substance: DEXAMETHASONE
     Dosage: SINGLE DOSE
     Route: 042
     Dates: start: 20140305, end: 20140305
  5. AVIL [Concomitant]
     Active Substance: PHENIRAMINE
     Indication: PROPHYLAXIS
     Dosage: SINGLE DOSE
     Route: 042
     Dates: start: 20140304, end: 20140304
  6. OMNIPAQUE [Concomitant]
     Active Substance: IOHEXOL
     Dosage: SINGLE DOSE
     Route: 042
     Dates: start: 20140205, end: 20140205
  7. GRANISETRON HYDROCHLORIDE. [Concomitant]
     Active Substance: GRANISETRON HYDROCHLORIDE
     Route: 042
     Dates: start: 20140305, end: 20140305
  8. DEKORT [Concomitant]
     Active Substance: DEXAMETHASONE
     Indication: PROPHYLAXIS
     Dosage: SINGLE DOSE
     Route: 042
     Dates: start: 20140304, end: 20140304
  9. AVIL [Concomitant]
     Active Substance: PHENIRAMINE
     Dosage: SINGLE DOSE
     Route: 042
     Dates: start: 20140305, end: 20140305
  10. GRANISETRON HYDROCHLORIDE. [Concomitant]
     Active Substance: GRANISETRON HYDROCHLORIDE
     Route: 042
     Dates: start: 20140304, end: 20140304
  11. OBINUTUZUMAB [Suspect]
     Active Substance: OBINUTUZUMAB
     Indication: CHRONIC LYMPHOCYTIC LEUKAEMIA
     Dosage: 05/MAR/2014: C1D2: 975 MG?DATE OF LAST DOSE PRIOR TO EVENT: 05/MAR/2014
     Route: 042
     Dates: start: 20140304, end: 20140304
  12. OBINUTUZUMAB [Suspect]
     Active Substance: OBINUTUZUMAB
     Dosage: DATE OF LAST DOSE PRIOR TO EVENT: 05/MAR/2014. ON 16/MAR/2014, OBINUTUZUMAB WAS PERMANENLTLY DISCONT
     Route: 042
     Dates: start: 20140305, end: 20140305
  13. BENDAMUSTINE [Suspect]
     Active Substance: BENDAMUSTINE
     Indication: CHRONIC LYMPHOCYTIC LEUKAEMIA
     Dosage: 05/MAR/2014: C1D2: 90 MG/M2 ?DOSE: 163 MG, ONCE A DAY
     Route: 042
     Dates: start: 20140304, end: 20140304
  14. GRANISETRON HYDROCHLORIDE. [Concomitant]
     Active Substance: GRANISETRON HYDROCHLORIDE
     Dosage: ONCE A DAY - 2MG
     Route: 048
     Dates: start: 20140304, end: 20140308
  15. ALLOPURINOL. [Concomitant]
     Active Substance: ALLOPURINOL
     Route: 048
     Dates: start: 20140304, end: 20140308

REACTIONS (2)
  - Tumour lysis syndrome [Fatal]
  - Febrile neutropenia [Fatal]

NARRATIVE: CASE EVENT DATE: 20140310
